FAERS Safety Report 18390438 (Version 1)
Quarter: 2020Q4

REPORT INFORMATION
  Report Type: Spontaneous
  Country: DE (occurrence: DE)
  Receive Date: 20201016
  Receipt Date: 20201016
  Transmission Date: 20210114
  Serious: Yes (Life-Threatening, Hospitalization, Other)
  Sender: FDA-Public Use
  Company Number: DE-AUROBINDO-AUR-APL-2011-01488

PATIENT
  Age: 62 Year
  Sex: Male
  Weight: 62 kg

DRUGS (2)
  1. LISINOPRIL  5 MG TABLETS [Suspect]
     Active Substance: LISINOPRIL
     Indication: PRODUCT USED FOR UNKNOWN INDICATION
     Dosage: 5 MG,ONCE A DAY,
     Route: 048
     Dates: start: 201004, end: 20110109
  2. ULTRAGRAF [Suspect]
     Active Substance: IOPROMIDE
     Indication: ANGIOCARDIOGRAM
     Dosage: UNK UNK,UNK,,1X490ML (376810 MG) ON 06-JAN-2011 AND 1X280ML (215320 MG) ON 07-JAN-2011
     Dates: start: 20110106, end: 20110107

REACTIONS (1)
  - Acute kidney injury [Recovered/Resolved]

NARRATIVE: CASE EVENT DATE: 20110108
